FAERS Safety Report 6638628-0 (Version None)
Quarter: 2010Q1

REPORT INFORMATION
  Report Type: 
  Country: None (occurrence: None)
  Receive Date: 20100316
  Receipt Date: 20100316
  Transmission Date: 20100710
  Serious: No
  Sender: FDA-Public Use
  Company Number: None

PATIENT
  Sex: Female
  Weight: 59.8748 kg

DRUGS (2)
  1. PEGASYS [Suspect]
     Indication: HEPATITIS C
     Dosage: 180 MCG/0.5 ML WEEKLY SQ
     Route: 058
     Dates: start: 20100312
  2. RIBAPAK RIBAPAK 600/600 MG TAB HOFFMANN-LA-ROCHE [Suspect]
     Indication: HEPATITIS C
     Dosage: 600/600 MG BID PO
     Route: 048
     Dates: start: 20100312

REACTIONS (1)
  - HEADACHE [None]
